FAERS Safety Report 21962059 (Version 1)
Quarter: 2023Q1

REPORT INFORMATION
  Report Type: Spontaneous
  Country: CN (occurrence: CN)
  Receive Date: 20230207
  Receipt Date: 20230207
  Transmission Date: 20230418
  Serious: Yes (Life-Threatening, Hospitalization, Disabling)
  Sender: FDA-Public Use
  Company Number: CN-PFIZER INC-PV202300022175

PATIENT
  Age: 60 Year
  Sex: Female
  Weight: 61 kg

DRUGS (4)
  1. PACLITAXEL [Suspect]
     Active Substance: PACLITAXEL
     Indication: Ovarian cancer
     Dosage: 230 MG, 1X/DAY
     Route: 041
     Dates: start: 20230112, end: 20230112
  2. CARBOPLATIN [Suspect]
     Active Substance: CARBOPLATIN
     Indication: Ovarian cancer
     Dosage: 0.45 G, 1X/DAY
     Route: 041
     Dates: start: 20230112, end: 20230112
  3. DEXTROSE [Concomitant]
     Active Substance: DEXTROSE
     Indication: Vehicle solution use
     Dosage: 500 ML, 1X/DAY (WITH PACLITAXEL)
     Route: 041
     Dates: start: 20230112, end: 20230112
  4. DEXTROSE [Concomitant]
     Active Substance: DEXTROSE
     Dosage: 250 ML, 1X/DAY (WITH CARBOPLATIN)
     Route: 041
     Dates: start: 20230112, end: 20230112

REACTIONS (4)
  - White blood cell count decreased [Recovered/Resolved]
  - Neutrophil count decreased [Recovered/Resolved]
  - Cytopenia [Recovered/Resolved]
  - Infection [Unknown]

NARRATIVE: CASE EVENT DATE: 20230120
